FAERS Safety Report 19126008 (Version 1)
Quarter: 2021Q2

REPORT INFORMATION
  Report Type: Spontaneous
  Country: US (occurrence: US)
  Receive Date: 20210412
  Receipt Date: 20210412
  Transmission Date: 20210717
  Serious: Yes (Disabling)
  Sender: FDA-Public Use
  Company Number: None

PATIENT
  Age: 24 Year
  Sex: Female
  Weight: 45.9 kg

DRUGS (6)
  1. BUSPAR 10MG [Concomitant]
  2. BIOTIN [Concomitant]
     Active Substance: BIOTIN
  3. GUANFACINE HYDROCHLORIDE TAB 2 MG ER [Suspect]
     Active Substance: GUANFACINE HYDROCHLORIDE
     Indication: ATTENTION DEFICIT HYPERACTIVITY DISORDER
     Dosage: ?          QUANTITY:90 TABLET(S);?
     Route: 048
     Dates: start: 20210324, end: 20210405
  4. LAMICTAL [Concomitant]
     Active Substance: LAMOTRIGINE
  5. GUANFACINE 2MG [Concomitant]
     Active Substance: GUANFACINE
  6. IBUPROFEN. [Concomitant]
     Active Substance: IBUPROFEN

REACTIONS (8)
  - Product quality issue [None]
  - Malaise [None]
  - Dizziness [None]
  - Feeling abnormal [None]
  - Fatigue [None]
  - Recalled product administered [None]
  - Pain in extremity [None]
  - Arthralgia [None]

NARRATIVE: CASE EVENT DATE: 20210326
